FAERS Safety Report 5725053-X (Version None)
Quarter: 2008Q2

REPORT INFORMATION
  Report Type: 
  Country: None (occurrence: None)
  Receive Date: 20080501
  Receipt Date: 20080421
  Transmission Date: 20081010
  Serious: Yes (Other)
  Sender: FDA-Public Use
  Company Number: FR-ELI_LILLY_AND_COMPANY-FR200804005352

PATIENT
  Age: 38 Year
  Sex: Female

DRUGS (1)
  1. PROZAC [Suspect]
     Indication: ANOREXIA NERVOSA
     Dosage: 20 MG, DAILY (1/D)
     Route: 048
     Dates: start: 19980101

REACTIONS (1)
  - TONGUE NEOPLASM MALIGNANT STAGE UNSPECIFIED [None]
